FAERS Safety Report 9357908 (Version 1)
Quarter: 2013Q2

REPORT INFORMATION
  Report Type: Spontaneous
  Country: US (occurrence: None)
  Receive Date: 20130619
  Receipt Date: 20130619
  Transmission Date: 20140414
  Serious: Yes (Life-Threatening, Other)
  Sender: FDA-Public Use
  Company Number: None

PATIENT
  Age: 57 Year
  Sex: Female
  Weight: 70.31 kg

DRUGS (1)
  1. BUPRENORPHINE-NALOXONE (AELLC) [Suspect]
     Route: 060
     Dates: start: 20130409

REACTIONS (5)
  - Anxiety [None]
  - Feeling abnormal [None]
  - Tremor [None]
  - Disturbance in attention [None]
  - Dysgeusia [None]
